FAERS Safety Report 9465674 (Version 1)
Quarter: 2013Q3

REPORT INFORMATION
  Report Type: Spontaneous
  Country: US (occurrence: US)
  Receive Date: 20130820
  Receipt Date: 20130820
  Transmission Date: 20140515
  Serious: No
  Sender: FDA-Public Use
  Company Number: US-BAYER-2013-100069

PATIENT
  Sex: Female

DRUGS (3)
  1. ALEVE CAPLET [Suspect]
     Indication: BACK PAIN
     Dosage: DF
     Route: 048
     Dates: start: 20130812
  2. OXYCODONE [Concomitant]
     Dosage: UNK
  3. PERCOCET [Concomitant]

REACTIONS (1)
  - Drug ineffective [None]
